FAERS Safety Report 6234194-2 (Version None)
Quarter: 2009Q2

REPORT INFORMATION
  Report Type: 
  Country: None (occurrence: None)
  Receive Date: 20090611
  Receipt Date: 20080603
  Transmission Date: 20091009
  Serious: Yes (Hospitalization, Disabling)
  Sender: FDA-Public Use
  Company Number: WAES 0806USA00619

PATIENT
  Age: 88 Year
  Sex: Female
  Weight: 43.0917 kg

DRUGS (3)
  1. FOSAMAX PLUS D [Suspect]
     Indication: OSTEOPOROSIS
     Dosage: 70MG-2800 IU/WKY/PO
     Route: 048
     Dates: start: 20050101
  2. FOSAMAX [Suspect]
     Indication: OSTEOPOROSIS
     Dosage: 70 MG/WKY/PO
     Route: 048
     Dates: start: 20021230
  3. ASPIRIN [Concomitant]

REACTIONS (2)
  - NAUSEA [None]
  - VOMITING [None]
